FAERS Safety Report 26022160 (Version 2)
Quarter: 2025Q4

REPORT INFORMATION
  Report Type: Spontaneous
  Country: AR (occurrence: AR)
  Receive Date: 20251110
  Receipt Date: 20251119
  Transmission Date: 20260118
  Serious: Yes (Hospitalization)
  Sender: JOHNSON AND JOHNSON
  Company Number: AR-BRISTOL-MYERS SQUIBB COMPANY-2025-150335

PATIENT
  Age: 73 Year
  Sex: Male
  Weight: 66 kg

DRUGS (13)
  1. DARATUMUMAB [Suspect]
     Active Substance: DARATUMUMAB
     Indication: Plasma cell myeloma
     Route: 058
     Dates: start: 20250826, end: 20250826
  2. DARATUMUMAB [Suspect]
     Active Substance: DARATUMUMAB
     Route: 058
     Dates: start: 20251020, end: 20251020
  3. POMALIDOMIDE [Suspect]
     Active Substance: POMALIDOMIDE
     Indication: Plasma cell myeloma
     Dosage: 4 MG
     Route: 048
     Dates: start: 20250826, end: 20250915
  4. DEXAMETHASONE [Suspect]
     Active Substance: DEXAMETHASONE
     Indication: Plasma cell myeloma
     Dosage: 20 MG
     Route: 048
     Dates: start: 20250826, end: 20251020
  5. ACYCLOVIR [Concomitant]
     Active Substance: ACYCLOVIR
     Indication: Prophylaxis
     Dosage: 400 MG
     Route: 048
     Dates: start: 20250826
  6. ASPIRIN [Concomitant]
     Active Substance: ASPIRIN
     Indication: Prophylaxis
     Dosage: 100 MG
     Route: 048
     Dates: start: 20250902
  7. CIPROFLOXACIN [Concomitant]
     Active Substance: CIPROFLOXACIN
     Indication: Asymptomatic bacteriuria
     Route: 048
     Dates: start: 20250911
  8. ACETILCISTEINE [Concomitant]
     Indication: Upper respiratory tract infection
     Dosage: 600 MG
     Route: 048
     Dates: start: 20251001
  9. AMOXICILIN CLAVULANIC [Concomitant]
     Indication: Upper respiratory tract infection
     Dosage: 1 G
     Route: 048
     Dates: start: 20251003
  10. BUDESONIDE [Concomitant]
     Active Substance: BUDESONIDE
     Indication: Upper respiratory tract infection
     Dosage: 2 PUFF
     Route: 055
     Dates: start: 20251003
  11. DEXAMETHASONE [Concomitant]
     Active Substance: DEXAMETHASONE
     Indication: Prophylaxis
     Dosage: 20 MG
     Route: 048
     Dates: start: 20251020, end: 20251020
  12. MONTELUKAST [Concomitant]
     Active Substance: MONTELUKAST
     Indication: Prophylaxis
     Dosage: 10 MG
     Route: 048
     Dates: start: 20251020, end: 20251020
  13. FILGRATIM [Concomitant]
     Indication: Neutropenia
     Dosage: 300MCG VIAL
     Route: 058
     Dates: start: 20251103

REACTIONS (1)
  - COVID-19 [Recovering/Resolving]

NARRATIVE: CASE EVENT DATE: 20251103
